FAERS Safety Report 7023268-4 (Version None)
Quarter: 2010Q3

REPORT INFORMATION
  Report Type: 
  Country: None (occurrence: None)
  Receive Date: 20100930
  Receipt Date: 20100810
  Transmission Date: 20110219
  Serious: Yes (Other)
  Sender: FDA-Public Use
  Company Number: PHHY2010BR53147

PATIENT
  Sex: Male
  Weight: 80 kg

DRUGS (1)
  1. DIOVAN [Suspect]
     Indication: HYPERTENSION
     Dosage: 0.5 TABLET DAILY
     Route: 048
     Dates: start: 20070101

REACTIONS (2)
  - BLOOD URIC ACID ABNORMAL [None]
  - RENAL DISORDER [None]
